FAERS Safety Report 13921703 (Version 1)
Quarter: 2017Q3

REPORT INFORMATION
  Report Type: Spontaneous
  Country: US (occurrence: None)
  Receive Date: 20170830
  Receipt Date: 20170830
  Transmission Date: 20171127
  Serious: No
  Sender: FDA-Public Use
  Company Number: None

PATIENT
  Age: 71 Year
  Sex: Male

DRUGS (1)
  1. CREST COMPLETE MULTI-BENEFIT PLUS SCOPE [Suspect]
     Active Substance: SODIUM FLUORIDE
     Indication: INJURY

REACTIONS (5)
  - Choking [None]
  - Oropharyngeal pain [None]
  - Pharyngeal disorder [None]
  - Dyspnoea [None]
  - Product physical consistency issue [None]

NARRATIVE: CASE EVENT DATE: 20170801
